FAERS Safety Report 20477496 (Version 1)
Quarter: 2022Q1

REPORT INFORMATION
  Report Type: Spontaneous
  Country: SE (occurrence: SE)
  Receive Date: 20220216
  Receipt Date: 20220216
  Transmission Date: 20220423
  Serious: Yes (Disabling)
  Sender: FDA-Public Use
  Company Number: SE-MPA-2022-005596

PATIENT
  Age: 20 Year
  Sex: Male
  Weight: 121 kg

DRUGS (5)
  1. CIPROFLOXACIN HYDROCHLORIDE [Suspect]
     Active Substance: CIPROFLOXACIN HYDROCHLORIDE
     Indication: Epididymitis
     Dosage: 500 MG 1 TABLET 2 TIMES/DAY FOR 14 DAYS
     Route: 048
     Dates: start: 20220113, end: 20220114
  2. Bupropion Sandoz 150 mg modified release tablets [Concomitant]
     Indication: Product used for unknown indication
     Dosage: UNK
     Route: 048
     Dates: start: 202108, end: 20211231
  3. Bupropion Sandoz 150 mg modified release tablets [Concomitant]
     Dosage: 150 MG 1 TABLET 1 TIME/DAY
     Route: 048
     Dates: start: 20220101
  4. Pronaxen 500 mg Tablet [Concomitant]
     Indication: Product used for unknown indication
     Dosage: 1000 MILLIGRAM, DAILY
     Route: 065
     Dates: start: 20220113
  5. Alvedon forte 1 g Film coated tablet [Concomitant]
     Indication: Product used for unknown indication
     Dosage: 4 GRAM AS NECESSARY
     Route: 065
     Dates: start: 20220113

REACTIONS (7)
  - Suicidal ideation [Recovered/Resolved]
  - Depression [Not Recovered/Not Resolved]
  - Arthralgia [Recovering/Resolving]
  - Dizziness [Recovered/Resolved with Sequelae]
  - Depersonalisation/derealisation disorder [Recovered/Resolved with Sequelae]
  - Disturbance in attention [Recovered/Resolved with Sequelae]
  - Hallucinations, mixed [Recovered/Resolved]

NARRATIVE: CASE EVENT DATE: 20220113
